FAERS Safety Report 7442405-0 (Version None)
Quarter: 2011Q2

REPORT INFORMATION
  Report Type: 
  Country: None (occurrence: None)
  Receive Date: 20110425
  Receipt Date: 20110425
  Transmission Date: 20111010
  Serious: Yes (Disabling, Other)
  Sender: FDA-Public Use
  Company Number: None

PATIENT
  Age: 29 Year
  Sex: Female
  Weight: 76.6579 kg

DRUGS (1)
  1. MIRENA [Suspect]
     Indication: MIGRAINE
     Dosage: INTRA-UTERINE
     Route: 015
     Dates: start: 20090901, end: 20110420

REACTIONS (2)
  - BENIGN INTRACRANIAL HYPERTENSION [None]
  - BLINDNESS [None]
